FAERS Safety Report 6607433-3 (Version None)
Quarter: 2010Q1

REPORT INFORMATION
  Report Type: 
  Country: None (occurrence: None)
  Receive Date: 20100301
  Receipt Date: 20100219
  Transmission Date: 20100710
  Serious: Yes (Hospitalization)
  Sender: FDA-Public Use
  Company Number: US-ELI_LILLY_AND_COMPANY-US201002005981

PATIENT
  Sex: Male
  Weight: 69.342 kg

DRUGS (3)
  1. GEMCITABINE HCL [Suspect]
     Indication: TRANSITIONAL CELL CARCINOMA
     Dosage: 1760 MG, OTHER
     Route: 042
     Dates: start: 20080611
  2. CISPLATIN [Suspect]
     Indication: TRANSITIONAL CELL CARCINOMA
     Dosage: 123 MG, OTHER
     Route: 042
     Dates: start: 20080611
  3. CETUXIMAB [Suspect]
     Indication: TRANSITIONAL CELL CARCINOMA
     Dosage: 500 MG/M2, OTHER
     Route: 042
     Dates: start: 20080618

REACTIONS (1)
  - PULMONARY EMBOLISM [None]
